FAERS Safety Report 7202589-6 (Version None)
Quarter: 2010Q4

REPORT INFORMATION
  Report Type: 
  Country: None (occurrence: None)
  Receive Date: 20101229
  Receipt Date: 20101220
  Transmission Date: 20110411
  Serious: Yes (Other)
  Sender: FDA-Public Use
  Company Number: US-PURDUE-USA-2010-0061037

PATIENT
  Sex: Male

DRUGS (1)
  1. OXYCONTIN [Suspect]
     Indication: PAIN
     Dosage: 60 MG, BID

REACTIONS (6)
  - DIVERTICULUM [None]
  - GASTROINTESTINAL PAIN [None]
  - MALAISE [None]
  - RENAL PAIN [None]
  - URINE COLOUR ABNORMAL [None]
  - WEIGHT DECREASED [None]
